FAERS Safety Report 5446137-X (Version None)
Quarter: 2007Q3

REPORT INFORMATION
  Report Type: 
  Country: None (occurrence: None)
  Receive Date: 20070904
  Receipt Date: 20070824
  Transmission Date: 20080115
  Serious: Yes (Other)
  Sender: FDA-Public Use
  Company Number: 6027293

PATIENT
  Age: 64 Year
  Sex: Female

DRUGS (1)
  1. ENALAPRIL MALEATE [Suspect]
     Indication: HYPERTENSION
     Dosage: 10 MG (10 MG,1 D);

REACTIONS (4)
  - COUGH [None]
  - SLEEP APNOEA SYNDROME [None]
  - SOMNOLENCE [None]
  - UPPER RESPIRATORY TRACT INFLAMMATION [None]
